FAERS Safety Report 10249592 (Version 2)
Quarter: 2014Q2

REPORT INFORMATION
  Report Type: Spontaneous
  Country: NL (occurrence: NL)
  Receive Date: 20140620
  Receipt Date: 20140625
  Transmission Date: 20141212
  Serious: Yes (Life-Threatening, Hospitalization, Other)
  Sender: FDA-Public Use
  Company Number: NL-009507513-1406NLD009886

PATIENT
  Sex: Female
  Weight: 90 kg

DRUGS (5)
  1. AMITRIPTYLINE HYDROCHLORIDE [Suspect]
     Indication: DEPRESSION
     Dosage: 1 KEER PER DAG 3 STUK(S), EXTRA INFO: TOTAAL 150 MGR.
     Route: 048
     Dates: start: 2003
  2. PARACETAMOL TABLETS BP [Concomitant]
     Dosage: 2 KEER PER DAG 2 STUK(S)
     Route: 048
  3. DICLOFENAC SODIUM [Concomitant]
     Dosage: 1 KEER PER DAG 1 STUK(S)
     Route: 048
  4. INSULIN [Concomitant]
     Route: 058
  5. OXAZEPAM [Concomitant]
     Dosage: 1 KEER PER DAG 0.5 STUK(S)
     Route: 048

REACTIONS (2)
  - Suicidal ideation [Recovered/Resolved with Sequelae]
  - Suicide attempt [Recovered/Resolved with Sequelae]
